FAERS Safety Report 8966406 (Version 1)
Quarter: 2012Q4

REPORT INFORMATION
  Report Type: Report from Study
  Country: DE (occurrence: DE)
  Receive Date: 20121216
  Receipt Date: 20121216
  Transmission Date: 20130627
  Serious: Yes (Death, Life-Threatening, Hospitalization)
  Sender: FDA-Public Use
  Company Number: DE-BRISTOL-MYERS SQUIBB COMPANY-17184532

PATIENT
  Age: 75 Year
  Sex: Female
  Weight: 62 kg

DRUGS (5)
  1. PACLITAXEL [Suspect]
     Indication: BREAST CANCER METASTATIC
     Route: 042
     Dates: start: 20100621
  2. BEVACIZUMAB [Suspect]
     Indication: BREAST CANCER METASTATIC
     Dosage: Last dose: 02Aug10
     Route: 042
     Dates: start: 20100621
  3. L-THYROXINE [Concomitant]
  4. METOPROLOL [Concomitant]
  5. PROVAS [Concomitant]

REACTIONS (1)
  - Intestinal perforation [Fatal]
